FAERS Safety Report 8278489-X (Version None)
Quarter: 2012Q2

REPORT INFORMATION
  Report Type: 
  Country: None (occurrence: None)
  Receive Date: 20120412
  Receipt Date: 20110516
  Transmission Date: 20120825
  Serious: Yes (Hospitalization)
  Sender: FDA-Public Use
  Company Number: US-ASTRAZENECA-2011SE29194

PATIENT
  Age: 68 Year
  Sex: Female
  Weight: 81.6 kg

DRUGS (9)
  1. FLEXTERAL [Concomitant]
     Indication: PAIN
     Route: 048
     Dates: start: 20100101
  2. HUMALOG [Concomitant]
     Indication: DIABETES MELLITUS
     Dosage: 25 UNITS BID
     Route: 050
     Dates: start: 19900101
  3. AMITRIPTYLINE HCL [Concomitant]
     Indication: INSOMNIA
     Route: 048
     Dates: start: 20110502
  4. LANTUS [Concomitant]
     Indication: DIABETES MELLITUS
     Dosage: 65 UNITS DAILY
     Route: 050
     Dates: start: 19900101
  5. NEXIUM [Suspect]
     Indication: ULCER
     Dosage: 40 MG BID
     Route: 048
     Dates: start: 20090101, end: 20110502
  6. TRAZODONE HCL [Concomitant]
     Indication: INSOMNIA
     Route: 048
     Dates: start: 20100101
  7. METFORMIN HCL [Concomitant]
     Indication: DIABETES MELLITUS
     Route: 048
     Dates: start: 19900101
  8. LOTREL [Concomitant]
     Indication: HYPERTENSION
     Route: 048
     Dates: start: 20000101
  9. GABAPENTIN [Concomitant]
     Indication: PAIN
     Route: 048
     Dates: start: 20101101

REACTIONS (2)
  - PAIN [None]
  - MUSCULAR WEAKNESS [None]
